FAERS Safety Report 17483974 (Version 1)
Quarter: 2020Q1

REPORT INFORMATION
  Report Type: Spontaneous
  Country: US (occurrence: US)
  Receive Date: 20200219
  Receipt Date: 20200219
  Transmission Date: 20200409
  Serious: Yes (Death)
  Sender: FDA-Public Use
  Company Number: None

PATIENT
  Age: 69 Year
  Sex: Male

DRUGS (1)
  1. WARFARIN (WARFARIN NA (EXELAN) 5MG TAB [Suspect]
     Active Substance: WARFARIN
     Indication: ATRIAL FIBRILLATION
     Route: 048
     Dates: start: 20150718, end: 20180418

REACTIONS (6)
  - Peritoneal haemorrhage [None]
  - International normalised ratio increased [None]
  - Unresponsive to stimuli [None]
  - Pulseless electrical activity [None]
  - Abdominal pain [None]
  - Hypotension [None]

NARRATIVE: CASE EVENT DATE: 20180418
